FAERS Safety Report 9554373 (Version 1)
Quarter: 2013Q3

REPORT INFORMATION
  Report Type: Spontaneous
  Country: JP (occurrence: JP)
  Receive Date: 20130925
  Receipt Date: 20130925
  Transmission Date: 20140515
  Serious: Yes (Death, Life-Threatening)
  Sender: FDA-Public Use
  Company Number: JP-ROXANE LABORATORIES, INC.-2013-RO-01568RO

PATIENT
  Sex: Female

DRUGS (5)
  1. AZATHIOPRINE [Suspect]
  2. FLUCONAZOLE [Suspect]
  3. STEROID [Suspect]
  4. MEROPENEM [Suspect]
     Indication: ANTIBIOTIC THERAPY
  5. SULFAMETHOXAZOLE / TRIMETHOPRIM [Suspect]
     Indication: ANTIBIOTIC THERAPY

REACTIONS (5)
  - Pneumothorax [Fatal]
  - Zygomycosis [Unknown]
  - Pneumonia [Unknown]
  - Candida test positive [Unknown]
  - Aspergillus infection [Unknown]
